FAERS Safety Report 8187480-3 (Version None)
Quarter: 2012Q1

REPORT INFORMATION
  Report Type: 
  Country: None (occurrence: None)
  Receive Date: 20120306
  Receipt Date: 20120302
  Transmission Date: 20120608
  Serious: Yes (Death, Hospitalization)
  Sender: FDA-Public Use
  Company Number: IT-ROCHE-1045078

PATIENT
  Sex: Male

DRUGS (3)
  1. AVASTIN [Suspect]
     Indication: COLON CANCER
     Route: 042
     Dates: start: 20111019, end: 20111109
  2. XELODA [Concomitant]
     Route: 048
     Dates: start: 20111019, end: 20111120
  3. IRINOTECAN HCL [Concomitant]
     Route: 042
     Dates: start: 20111019, end: 20111109

REACTIONS (4)
  - PLATELET COUNT DECREASED [None]
  - CHEST INJURY [None]
  - PRESYNCOPE [None]
  - NEUTROPENIA [None]
